FAERS Safety Report 7184159-1 (Version None)
Quarter: 2010Q4

REPORT INFORMATION
  Report Type: 
  Country: None (occurrence: None)
  Receive Date: 20101222
  Receipt Date: 20101213
  Transmission Date: 20110411
  Serious: Yes (Other)
  Sender: FDA-Public Use
  Company Number: US-ABBOTT-10P-163-0691378-00

PATIENT
  Sex: Female
  Weight: 121.22 kg

DRUGS (13)
  1. HUMIRA [Suspect]
     Indication: RHEUMATOID ARTHRITIS
     Route: 058
     Dates: start: 20101120, end: 20101127
  2. HUMIRA [Suspect]
     Route: 058
     Dates: start: 20101127
  3. SOMA [Concomitant]
     Indication: SPINAL OSTEOARTHRITIS
  4. MORPHINE XR [Concomitant]
     Indication: RHEUMATOID ARTHRITIS
     Dosage: AS NEEDED
  5. MORPHINE [Concomitant]
     Indication: BREAKTHROUGH PAIN
     Dosage: AS NEEDED.
  6. LORTAB [Concomitant]
     Indication: PAIN
     Dosage: AS NEEDED.
  7. PLAVIX [Concomitant]
     Indication: CEREBROVASCULAR ACCIDENT
     Dosage: NOT REPORTED.
  8. LISINOPRIL [Concomitant]
     Indication: HYPERTENSION
     Dosage: NOT REPORTED.
  9. LOPRESSOR [Concomitant]
     Indication: HYPERTENSION
  10. LASIX [Concomitant]
     Indication: SWELLING
     Dosage: AS NEEDED.
  11. VOLTARIN [Concomitant]
     Indication: RHEUMATOID ARTHRITIS
  12. NAPROXEN [Concomitant]
     Indication: RHEUMATOID ARTHRITIS
  13. LAMOTIL [Concomitant]
     Indication: COLITIS ULCERATIVE

REACTIONS (4)
  - ANKLE FRACTURE [None]
  - FALL [None]
  - SKIN LACERATION [None]
  - TENDON INJURY [None]
